FAERS Safety Report 8451608-8 (Version None)
Quarter: 2012Q2

REPORT INFORMATION
  Report Type: 
  Country: None (occurrence: None)
  Receive Date: 20120620
  Receipt Date: 20120309
  Transmission Date: 20120825
  Serious: No
  Sender: FDA-Public Use
  Company Number: US-VERTEX PHARMACEUTICALS INC.-AE-2012-003417

PATIENT
  Sex: Female
  Weight: 74.456 kg

DRUGS (7)
  1. RIBAVIRIN [Concomitant]
     Indication: HEPATITIS C
     Route: 048
     Dates: start: 20120217
  2. AMBIEN [Concomitant]
     Route: 048
  3. INCIVEK [Suspect]
     Indication: HEPATITIS C
     Route: 048
     Dates: start: 20120217
  4. PEGASYS [Concomitant]
     Indication: HEPATITIS C
     Route: 058
     Dates: start: 20120217
  5. NEURONTIN [Concomitant]
     Indication: BIPOLAR DISORDER
     Route: 048
  6. SEROQUEL [Concomitant]
     Indication: BIPOLAR DISORDER
     Route: 048
  7. TRILEPTAL [Concomitant]
     Indication: BIPOLAR DISORDER
     Route: 048

REACTIONS (2)
  - RASH ERYTHEMATOUS [None]
  - OEDEMA PERIPHERAL [None]
